FAERS Safety Report 23033939 (Version 1)
Quarter: 2023Q4

REPORT INFORMATION
  Report Type: Spontaneous
  Country: JP (occurrence: JP)
  Receive Date: 20231005
  Receipt Date: 20231005
  Transmission Date: 20240110
  Serious: Yes (Hospitalization, Other)
  Sender: FDA-Public Use
  Company Number: JP-INGENUS PHARMACEUTICALS, LLC-2023INF000056

PATIENT
  Age: 58 Year
  Sex: Female

DRUGS (4)
  1. DOCETAXEL [Suspect]
     Active Substance: DOCETAXEL
     Indication: Breast cancer metastatic
     Dosage: TOTAL DOSE WAS 780 MG
     Route: 065
  2. DEXAMETHASONE [Concomitant]
     Active Substance: DEXAMETHASONE
     Indication: Breast cancer metastatic
     Dosage: UNK
     Route: 065
  3. TRAMADOL HYDROCHLORIDE [Concomitant]
     Active Substance: TRAMADOL HYDROCHLORIDE
     Indication: Pain
     Dosage: 37.5 MILLIGRAM, QD
     Route: 065
  4. ACETAMINOPHEN [Concomitant]
     Active Substance: ACETAMINOPHEN
     Indication: Pain
     Dosage: 325 MILLIGRAM AS NEEDED
     Route: 065

REACTIONS (3)
  - Left ventricle outflow tract obstruction [Recovered/Resolved]
  - Cardiac failure high output [Recovering/Resolving]
  - Generalised oedema [Recovering/Resolving]
